FAERS Safety Report 9285528 (Version 1)
Quarter: 2013Q2

REPORT INFORMATION
  Report Type: Spontaneous
  Country: US (occurrence: US)
  Receive Date: 20130513
  Receipt Date: 20130513
  Transmission Date: 20140414
  Serious: No
  Sender: FDA-Public Use
  Company Number: US-PFIZER INC-2013143194

PATIENT
  Age: 52 Year
  Sex: Female
  Weight: 77.1 kg

DRUGS (3)
  1. LEVOXYL [Suspect]
     Indication: BASEDOW^S DISEASE
     Dosage: UNK
     Dates: start: 1998
  2. ADVAIR [Concomitant]
     Dosage: UNK, 1X/DAY
  3. PEPCID [Concomitant]
     Dosage: UNK, 1X/DAY

REACTIONS (11)
  - Malaise [Recovering/Resolving]
  - Feeling hot [Recovering/Resolving]
  - Dysstasia [Recovering/Resolving]
  - Eye pain [Recovering/Resolving]
  - Hypersensitivity [Recovering/Resolving]
  - Gait disturbance [Recovering/Resolving]
  - Headache [Recovering/Resolving]
  - Vomiting [Recovering/Resolving]
  - Muscular weakness [Recovering/Resolving]
  - Hyperhidrosis [Recovering/Resolving]
  - Nausea [Recovering/Resolving]
